FAERS Safety Report 5086785-2 (Version None)
Quarter: 2006Q3

REPORT INFORMATION
  Report Type: 
  Country: None (occurrence: None)
  Receive Date: 20060818
  Receipt Date: 20060811
  Transmission Date: 20061208
  Serious: Yes (Hospitalization, Other)
  Sender: FDA-Public Use
  Company Number: 2006098213

PATIENT
  Sex: Female

DRUGS (13)
  1. LIPITOR [Suspect]
     Dosage: 10 MG
  2. LASIX [Suspect]
  3. BIAXIN [Suspect]
     Indication: HELICOBACTER GASTRITIS
     Dates: start: 20040101
  4. DIGOXIN [Suspect]
  5. ZETIA [Suspect]
     Dates: start: 20050101
  6. POTASSIUM (POTASSIUM) [Concomitant]
  7. UBIDECARENONE (UBIDECARENONE) [Concomitant]
  8. OMEPRAZOLE [Concomitant]
  9. HMG COA REDUCTASE INHIBITORS (HMG COA REDUCTASE INHIBITORS) [Concomitant]
  10. CHONDROITIN/GLUCOSAMINE (CHONDROITIN, GLUCOSAMINE) [Concomitant]
  11. ANTIINFLAMMATORY/ANTIRHEUMATIC PRODUCTS (ANTIINFLAMMATORY/ANTIRHEUMATI [Concomitant]
  12. MULTIVITAMIN [Concomitant]
  13. LOPRESSOR [Concomitant]

REACTIONS (10)
  - CATARACT [None]
  - DEHYDRATION [None]
  - DIZZINESS [None]
  - DRUG INTERACTION [None]
  - GASTROINTESTINAL DISORDER [None]
  - HAEMORRHAGE [None]
  - HELICOBACTER GASTRITIS [None]
  - LACTOSE INTOLERANCE [None]
  - PLATELET COUNT DECREASED [None]
  - RED BLOOD CELL COUNT DECREASED [None]
